FAERS Safety Report 7083149-7 (Version None)
Quarter: 2010Q4

REPORT INFORMATION
  Report Type: 
  Country: None (occurrence: None)
  Receive Date: 20101104
  Receipt Date: 20101028
  Transmission Date: 20110411
  Serious: Yes (Hospitalization)
  Sender: FDA-Public Use
  Company Number: US-BAXTER-2010BH026615

PATIENT
  Age: 13 Month
  Sex: Male

DRUGS (2)
  1. DIANEAL [Suspect]
     Indication: PERITONEAL DIALYSIS
     Route: 033
  2. KAYEXALATE [Suspect]
     Indication: HYPERKALAEMIA
     Route: 065

REACTIONS (2)
  - BLOOD ELECTROLYTES ABNORMAL [None]
  - DEVICE LEAKAGE [None]
